FAERS Safety Report 16891789 (Version 1)
Quarter: 2019Q4

REPORT INFORMATION
  Report Type: Report from Study
  Country: DE (occurrence: DE)
  Receive Date: 20191007
  Receipt Date: 20191007
  Transmission Date: 20200122
  Serious: Yes (Death, Life-Threatening)
  Sender: FDA-Public Use
  Company Number: DE-PFIZER INC-2019307453

PATIENT
  Age: 83 Year
  Sex: Male
  Weight: 86 kg

DRUGS (34)
  1. LAXANS [BISACODYL] [Concomitant]
     Indication: CONSTIPATION PROPHYLAXIS
     Dosage: UNK
     Dates: start: 20180527, end: 20180605
  2. JONOSTERIL [CALCIUM CHLORIDE DIHYDRATE;POTASSIUM CHLORIDE;SODIUM LACTA [Concomitant]
     Indication: FLUID REPLACEMENT
     Dosage: UNK
     Dates: start: 20180609, end: 20180611
  3. 5-FU [Suspect]
     Active Substance: FLUOROURACIL
     Indication: PANCREATIC CARCINOMA METASTATIC
     Dosage: 808 MG, CYCLIC
     Route: 040
     Dates: start: 20180601
  4. NOVALGIN (METAMIZOLE SODIUM) [Concomitant]
     Active Substance: METAMIZOLE SODIUM
     Indication: PANCREATIC CARCINOMA METASTATIC
     Dosage: UNK
     Dates: start: 20180525, end: 20180605
  5. TORASEMID [Concomitant]
     Active Substance: TORSEMIDE
     Indication: CARDIAC FAILURE
     Dosage: UNK
     Dates: start: 20180528, end: 20180607
  6. SALVIATHYMOL [Concomitant]
     Indication: MUCOSAL INFLAMMATION
     Dosage: UNK
     Dates: start: 20180611
  7. BLINDED THERAPY [Suspect]
     Active Substance: INVESTIGATIONAL PRODUCT
     Indication: PANCREATIC CARCINOMA METASTATIC
     Dosage: 0.8 MG, DAILY
     Route: 058
     Dates: start: 20180601
  8. HALOPERIDOL. [Concomitant]
     Active Substance: HALOPERIDOL
     Indication: AGITATION
     Dosage: UNK
     Dates: start: 20180606, end: 20180607
  9. SPIRONOLACTONE. [Concomitant]
     Active Substance: SPIRONOLACTONE
     Indication: ASCITES
     Dosage: UNK
     Dates: start: 20180518
  10. DEXAMETHASONE. [Concomitant]
     Active Substance: DEXAMETHASONE
     Indication: PSYCHOTHERAPY
     Dosage: UNK
     Dates: start: 20180607, end: 20180607
  11. ADDAVEN [Concomitant]
     Active Substance: ELECTROLYTES NOS\MINERALS
     Indication: PSYCHOTHERAPY
     Dosage: UNK
     Dates: start: 20180603, end: 20180608
  12. NORSPAN [Concomitant]
     Active Substance: BUPRENORPHINE
     Indication: PAIN
     Dosage: UNK
     Dates: start: 20180605, end: 20180605
  13. GLANDOMED [Concomitant]
     Indication: MUCOSAL INFLAMMATION
     Dosage: UNK
     Dates: start: 20180611
  14. METOPROLOL. [Concomitant]
     Active Substance: METOPROLOL
     Indication: HYPERTENSION
     Dosage: UNK
  15. MONO EMBOLEX [Concomitant]
     Active Substance: CERTOPARIN SODIUM
     Indication: THROMBOSIS PROPHYLAXIS
     Dosage: UNK
     Dates: start: 20180518, end: 20180608
  16. MCP ABZ [Concomitant]
     Indication: NAUSEA
     Dosage: UNK
     Dates: start: 20180530, end: 20180605
  17. MIRTAZAPIN [Concomitant]
     Active Substance: MIRTAZAPINE
     Indication: AGITATION
     Dosage: UNK
     Dates: start: 20180603, end: 20180610
  18. ONDANSETRON [Concomitant]
     Active Substance: ONDANSETRON
     Indication: NAUSEA
     Dosage: UNK
     Dates: start: 20180607, end: 20180609
  19. LEUCOVORIN. [Suspect]
     Active Substance: LEUCOVORIN
     Indication: PANCREATIC CARCINOMA METASTATIC
     Dosage: 808 MG, CYCLIC
     Route: 042
     Dates: start: 20180601
  20. MORPHINE [Concomitant]
     Active Substance: MORPHINE
     Indication: PANCREATIC CARCINOMA METASTATIC
     Dosage: UNK
     Dates: start: 20180527
  21. DIMENHYDRINATE. [Concomitant]
     Active Substance: DIMENHYDRINATE
     Indication: NAUSEA
     Dosage: UNK
     Dates: start: 20180602, end: 20180608
  22. SULBACTAM [Concomitant]
     Active Substance: SULBACTAM
     Dosage: UNK
     Dates: start: 20180608, end: 20180611
  23. OXALIPLATIN. [Suspect]
     Active Substance: OXALIPLATIN
     Indication: PANCREATIC CARCINOMA METASTATIC
     Dosage: 172 MG, CYCLIC
     Route: 042
     Dates: start: 20180601
  24. NUTRIFLEX LIPID [AMINO ACIDS NOS;CARBOHYDRATES NOS;ELECTROLYTES NOS;LI [Concomitant]
     Indication: PARENTERAL NUTRITION
     Dosage: UNK
     Dates: start: 20180604, end: 20180608
  25. FLUMAZENIL. [Concomitant]
     Active Substance: FLUMAZENIL
     Indication: ALTERED STATE OF CONSCIOUSNESS
     Dosage: UNK
     Dates: start: 20180608, end: 20180608
  26. AMPHO-MORONAL [Concomitant]
     Active Substance: AMPHOTERICIN B
     Indication: MUCOSAL INFLAMMATION
     Dosage: UNK
     Dates: start: 20180610
  27. 5-FU [Suspect]
     Active Substance: FLUOROURACIL
     Dosage: 4848 MG, CYCLIC
     Route: 042
     Dates: start: 20180601
  28. PANTOPRAZOLE [Concomitant]
     Active Substance: PANTOPRAZOLE
     Indication: PROPHYLAXIS
     Dosage: UNK
     Dates: start: 20180115, end: 20180611
  29. SPIRONOLACTONE. [Concomitant]
     Active Substance: SPIRONOLACTONE
     Indication: CARDIAC FAILURE
     Dosage: UNK
     Dates: start: 20180530, end: 20180603
  30. NOVAMINSULFON [Concomitant]
     Active Substance: METAMIZOLE
     Indication: PAIN
     Dosage: UNK
     Dates: start: 20180115, end: 20180605
  31. AMPICILLIN [Concomitant]
     Active Substance: AMPICILLIN
     Dosage: UNK
     Dates: start: 20180608, end: 20180611
  32. BUPREN [Concomitant]
     Indication: PAIN
     Dosage: UNK
     Dates: start: 20180606, end: 20180611
  33. PIPERACILLIN. [Concomitant]
     Active Substance: PIPERACILLIN SODIUM
     Dosage: UNK
     Dates: start: 20180611
  34. TAZOBACTAM [Concomitant]
     Active Substance: TAZOBACTAM
     Indication: PSYCHOTHERAPY
     Dosage: UNK
     Dates: start: 20180611

REACTIONS (3)
  - Stomatitis [Not Recovered/Not Resolved]
  - Condition aggravated [Not Recovered/Not Resolved]
  - Sepsis [Fatal]

NARRATIVE: CASE EVENT DATE: 20180611
